FAERS Safety Report 13209966 (Version 1)
Quarter: 2017Q1

REPORT INFORMATION
  Report Type: Spontaneous
  Country: US (occurrence: US)
  Receive Date: 20170210
  Receipt Date: 20170210
  Transmission Date: 20170428
  Serious: No
  Sender: FDA-Public Use
  Company Number: US-ASTRAZENECA-2017SE11669

PATIENT
  Age: 76 Year
  Sex: Male

DRUGS (1)
  1. PRILOSEC OTC [Suspect]
     Active Substance: OMEPRAZOLE MAGNESIUM
     Route: 048
     Dates: start: 20170111

REACTIONS (2)
  - Genital pain [Not Recovered/Not Resolved]
  - Genital blister [Not Recovered/Not Resolved]

NARRATIVE: CASE EVENT DATE: 201701
